FAERS Safety Report 9714087 (Version 3)
Quarter: 2013Q4

REPORT INFORMATION
  Report Type: Spontaneous
  Country: JP (occurrence: JP)
  Receive Date: 20131126
  Receipt Date: 20131210
  Transmission Date: 20140711
  Serious: Yes (Hospitalization, Other)
  Sender: FDA-Public Use
  Company Number: JP-PFIZER INC-2013334886

PATIENT
  Age: 69 Year
  Sex: Female
  Weight: 39.3 kg

DRUGS (10)
  1. LYRICA [Suspect]
     Indication: HYPOAESTHESIA
     Dosage: 75 MG, 1X/DAY
     Route: 048
     Dates: start: 20131108, end: 20131109
  2. PACLITAXEL [Suspect]
     Indication: UTERINE CANCER
     Dosage: 100 MG, 1X/DAY
     Route: 042
     Dates: start: 20131107, end: 20131107
  3. CARBOPLATIN [Suspect]
     Indication: UTERINE CANCER
     Dosage: 543 MG, 1X/DAY
     Route: 042
     Dates: start: 20131107, end: 20131107
  4. EMEND [Concomitant]
     Indication: PROPHYLAXIS OF NAUSEA AND VOMITING
     Dosage: UNKNOWN DOSE ONCE DAILY
     Route: 048
     Dates: start: 20131107, end: 20131109
  5. MYSLEE [Concomitant]
     Indication: INSOMNIA
     Dosage: 5 MG, 1X/DAY
     Route: 048
     Dates: start: 20131107
  6. LOXONIN [Concomitant]
     Dosage: UNK
     Route: 048
     Dates: start: 201311, end: 20131110
  7. RESTAMIN [Concomitant]
     Dosage: UNK
  8. REBAMIPIDE [Concomitant]
     Dosage: UNK
  9. PRIMPERAN [Concomitant]
     Indication: NAUSEA
     Dosage: 5 MG, 3X/DAY
     Route: 048
     Dates: start: 20131109, end: 20131109
  10. MAGLAX [Concomitant]
     Indication: CONSTIPATION
     Dosage: 330 MG, 3X/DAY
     Route: 048
     Dates: start: 20131109, end: 20131109

REACTIONS (7)
  - Altered state of consciousness [Recovered/Resolved]
  - Hyponatraemia [Recovered/Resolved]
  - Urinary incontinence [Recovering/Resolving]
  - Dyskinesia [Recovered/Resolved]
  - Disorientation [Recovering/Resolving]
  - Hypokalaemia [Recovering/Resolving]
  - Hypochloraemia [Recovering/Resolving]
